FAERS Safety Report 14656482 (Version 5)
Quarter: 2018Q2

REPORT INFORMATION
  Report Type: Report from Study
  Country: FR (occurrence: FR)
  Receive Date: 20180319
  Receipt Date: 20180612
  Transmission Date: 20180711
  Serious: Yes (Other)
  Sender: FDA-Public Use
  Company Number: FR-MYLANLABS-2018M1016072

PATIENT
  Age: 80 Year
  Sex: Male

DRUGS (2)
  1. CABAZITAXEL [Suspect]
     Active Substance: CABAZITAXEL
     Indication: PRODUCT USED FOR UNKNOWN INDICATION
     Dosage: UNK
     Route: 051
  2. PREDNISONE. [Suspect]
     Active Substance: PREDNISONE
     Indication: PRODUCT USED FOR UNKNOWN INDICATION
     Dosage: UNK
     Route: 065

REACTIONS (88)
  - Cough [Recovering/Resolving]
  - Diarrhoea [Recovering/Resolving]
  - Rhinorrhoea [Unknown]
  - Negative thoughts [Recovering/Resolving]
  - Faeces soft [Not Recovered/Not Resolved]
  - Visual impairment [Not Recovered/Not Resolved]
  - Cataract [Unknown]
  - Ear pain [Unknown]
  - Vertigo [Recovering/Resolving]
  - Oedema peripheral [Unknown]
  - Toothache [Recovering/Resolving]
  - Skin discolouration [Unknown]
  - Gingival pain [Unknown]
  - Fall [Unknown]
  - Osteoarthritis [Unknown]
  - Decreased appetite [Unknown]
  - Anxiety [Unknown]
  - Gastrointestinal pain [Unknown]
  - Phlebitis [Unknown]
  - Balance disorder [Unknown]
  - Tremor [Unknown]
  - Anorectal discomfort [Unknown]
  - Pruritus [Recovering/Resolving]
  - Sensory loss [Unknown]
  - Onychomadesis [Unknown]
  - Impatience [Unknown]
  - Abdominal pain upper [Recovering/Resolving]
  - Salivary hypersecretion [Unknown]
  - Loss of personal independence in daily activities [Unknown]
  - Nasopharyngitis [Recovering/Resolving]
  - Blindness [Unknown]
  - Grip strength decreased [Not Recovered/Not Resolved]
  - Angina pectoris [Unknown]
  - Dyspepsia [Unknown]
  - Tooth fracture [Unknown]
  - Sciatica [Not Recovered/Not Resolved]
  - Peripheral sensory neuropathy [Recovering/Resolving]
  - Vision blurred [Recovering/Resolving]
  - Limb injury [Unknown]
  - Fatigue [Not Recovered/Not Resolved]
  - Gastrooesophageal reflux disease [Unknown]
  - Pain in extremity [Unknown]
  - Glossodynia [Unknown]
  - Lacrimation increased [Recovering/Resolving]
  - Dysstasia [Unknown]
  - Eye irritation [Unknown]
  - Arthralgia [Recovering/Resolving]
  - Haemorrhoids [Recovering/Resolving]
  - Musculoskeletal chest pain [Recovering/Resolving]
  - Gait disturbance [Unknown]
  - Nail discolouration [Unknown]
  - Ingrowing nail [Unknown]
  - Back pain [Recovering/Resolving]
  - Headache [Unknown]
  - Skin exfoliation [Unknown]
  - Dry skin [Recovering/Resolving]
  - Nocturia [Recovering/Resolving]
  - Loose tooth [Unknown]
  - Stomatitis [Unknown]
  - Gastroenteritis [Unknown]
  - Dizziness [Not Recovered/Not Resolved]
  - Ageusia [Recovering/Resolving]
  - Gait disturbance [Unknown]
  - Onychoclasis [Recovering/Resolving]
  - Nausea [Recovering/Resolving]
  - Dry mouth [Unknown]
  - General physical health deterioration [Unknown]
  - Haematoma [Unknown]
  - Muscular weakness [Unknown]
  - Influenza [Unknown]
  - Pyrexia [Not Recovered/Not Resolved]
  - Pain of skin [Not Recovered/Not Resolved]
  - Limb discomfort [Recovering/Resolving]
  - Chest discomfort [Unknown]
  - Burning sensation [Unknown]
  - Epistaxis [Unknown]
  - Paraesthesia [Not Recovered/Not Resolved]
  - Immobile [Unknown]
  - Constipation [Not Recovered/Not Resolved]
  - Peripheral swelling [Unknown]
  - Gastric pH decreased [Unknown]
  - Ocular hyperaemia [Recovering/Resolving]
  - Nervousness [Unknown]
  - Glaucoma [Unknown]
  - Dyspnoea exertional [Recovering/Resolving]
  - Lip dry [Unknown]
  - Eye disorder [Unknown]
  - Weight decreased [Recovering/Resolving]

NARRATIVE: CASE EVENT DATE: 20151101
